FAERS Safety Report 5766955-8 (Version None)
Quarter: 2008Q2

REPORT INFORMATION
  Report Type: 
  Country: None (occurrence: None)
  Receive Date: 20080612
  Receipt Date: 20080603
  Transmission Date: 20081010
  Serious: Yes (Other)
  Sender: FDA-Public Use
  Company Number: NL-AVENTIS-200815184GDDC

PATIENT
  Age: 63 Year
  Sex: Female

DRUGS (9)
  1. LANTUS [Suspect]
     Indication: DIABETES MELLITUS
     Route: 058
  2. SIFROL [Suspect]
  3. NOVORAPID [Suspect]
     Indication: DIABETES MELLITUS
     Route: 058
  4. SINGULAIR [Concomitant]
  5. SANDOSTATIN [Concomitant]
  6. PARACETAMOL WITH CODEINE PHOSPHATE [Concomitant]
     Dosage: DOSE QUANTITY: 6
  7. NEXIUM [Concomitant]
  8. LANETTE CREME [Concomitant]
  9. XALATAN [Concomitant]
     Dosage: DOSE QUANTITY: 1

REACTIONS (2)
  - DRUG INTERACTION [None]
  - HYPOGLYCAEMIA [None]
